FAERS Safety Report 9050529 (Version 2)
Quarter: 2013Q1

REPORT INFORMATION
  Report Type: Spontaneous
  Country: JP (occurrence: JP)
  Receive Date: 20130205
  Receipt Date: 20130207
  Transmission Date: 20140127
  Serious: Yes (Death, Hospitalization)
  Sender: FDA-Public Use
  Company Number: PHHY2013JP010194

PATIENT
  Sex: Female

DRUGS (3)
  1. CICLOSPORIN [Suspect]
     Indication: STEM CELL TRANSPLANT
  2. PREDNISOLONE [Suspect]
     Indication: STEM CELL TRANSPLANT
  3. ETOPOSIDE [Suspect]
     Indication: STEM CELL TRANSPLANT

REACTIONS (5)
  - Liver injury [Fatal]
  - Disseminated intravascular coagulation [Fatal]
  - Epstein-Barr virus infection [Unknown]
  - Histiocytosis haematophagic [Unknown]
  - Drug ineffective [Unknown]
